FAERS Safety Report 16222813 (Version 2)
Quarter: 2020Q4

REPORT INFORMATION
  Report Type: Spontaneous
  Country: FR (occurrence: FR)
  Receive Date: 20190422
  Receipt Date: 20201027
  Transmission Date: 20210113
  Serious: Yes (Congenital Anomaly, Other)
  Sender: FDA-Public Use
  Company Number: FR-GLAXOSMITHKLINE-FR2019071459

PATIENT
  Sex: Female

DRUGS (1)
  1. LAMICTAL [Suspect]
     Active Substance: LAMOTRIGINE
     Indication: EPILEPSY
     Dosage: 200 MG, QD
     Route: 064
     Dates: start: 20180427, end: 20190120

REACTIONS (4)
  - Ear malformation [Not Recovered/Not Resolved]
  - Foetal exposure during pregnancy [Unknown]
  - Deafness [Not Recovered/Not Resolved]
  - Chondroma [Not Recovered/Not Resolved]

NARRATIVE: CASE EVENT DATE: 20180921
